FAERS Safety Report 5716929-8 (Version None)
Quarter: 2008Q2

REPORT INFORMATION
  Report Type: 
  Country: None (occurrence: None)
  Receive Date: 20080424
  Receipt Date: 20080411
  Transmission Date: 20081010
  Serious: Yes (Life-Threatening, Hospitalization)
  Sender: FDA-Public Use
  Company Number: GB-AMGEN-US262231

PATIENT
  Sex: Female
  Weight: 85 kg

DRUGS (12)
  1. ENBREL [Suspect]
     Indication: RHEUMATOID ARTHRITIS
     Route: 058
     Dates: start: 20071108, end: 20080101
  2. FUROSEMIDE [Concomitant]
     Dosage: UNKNOWN
     Route: 065
  3. SIMVASTATIN [Concomitant]
     Dosage: UNKNOWN
     Route: 065
  4. VALSARTAN [Concomitant]
     Dosage: UNKNOWN
     Route: 065
  5. CROMOLYN SODIUM [Concomitant]
     Dosage: UNKNOWN
     Route: 065
  6. FOLIC ACID [Concomitant]
     Dosage: UNKNOWN
     Route: 065
  7. LANSOPRAZOLE [Concomitant]
     Dosage: UNKNOWN
     Route: 065
  8. ACETYLSALICYLIC ACID SRT [Concomitant]
     Dosage: UNKNOWN
     Route: 065
  9. ACETAMINOPHEN W/ CODEINE [Concomitant]
     Dosage: UNKNOWN
     Route: 065
  10. LANSOPRAZOLE [Concomitant]
     Dosage: UNKNOWN
     Route: 065
  11. METHOTREXATE [Concomitant]
     Dosage: UNKNOWN
     Route: 065
  12. MIRTAZAPINE [Concomitant]
     Dosage: UNKNOWN
     Route: 065

REACTIONS (2)
  - DYSPNOEA [None]
  - PNEUMOCYSTIS JIROVECI PNEUMONIA [None]
